FAERS Safety Report 25551745 (Version 1)
Quarter: 2025Q3

REPORT INFORMATION
  Report Type: Spontaneous
  Country: US (occurrence: None)
  Receive Date: 20250714
  Receipt Date: 20250714
  Transmission Date: 20251021
  Serious: Yes (Other)
  Sender: FDA-CTU
  Company Number: None

PATIENT
  Age: 40 Year
  Sex: Female
  Weight: 67.5 kg

DRUGS (9)
  1. TOPIRAMATE [Suspect]
     Active Substance: TOPIRAMATE
     Indication: Migraine prophylaxis
     Dosage: OTHER QUANTITY : 1 TABLET(S);?FREQUENCY : AT BEDTIME;?
     Route: 048
     Dates: start: 20250710, end: 20250712
  2. NURTEC ODT [Concomitant]
     Active Substance: RIMEGEPANT SULFATE
  3. PROGESTERONE [Concomitant]
     Active Substance: PROGESTERONE
  4. COENZYME Q10 [Concomitant]
     Active Substance: DIETARY SUPPLEMENT\UBIDECARENONE
  5. MAGNESIUM GLYCINATE [Concomitant]
     Active Substance: MAGNESIUM GLYCINATE
  6. RIBOFLAVIN [Concomitant]
     Active Substance: RIBOFLAVIN
  7. vitamind3/k2 [Concomitant]
  8. FISH OIL [Concomitant]
     Active Substance: FISH OIL
  9. MELATONIN [Concomitant]
     Active Substance: MELATONIN

REACTIONS (6)
  - Gastrooesophageal reflux disease [None]
  - Gastrointestinal pain [None]
  - Affect lability [None]
  - Anger [None]
  - Depression [None]
  - Suicidal ideation [None]

NARRATIVE: CASE EVENT DATE: 20250712
